FAERS Safety Report 15274244 (Version 2)
Quarter: 2018Q3

REPORT INFORMATION
  Report Type: Spontaneous
  Country: US (occurrence: US)
  Receive Date: 20180814
  Receipt Date: 20180814
  Transmission Date: 20181010
  Serious: Yes (Hospitalization, Other)
  Sender: FDA-Public Use
  Company Number: US-AUROBINDO-AUR-APL-2018-040769

PATIENT
  Age: 60 Year
  Sex: Female

DRUGS (3)
  1. AZATHIOPRINE. [Suspect]
     Active Substance: AZATHIOPRINE
     Indication: ANTISYNTHETASE SYNDROME
     Dosage: UNK
     Route: 065
  2. PREDNISONE. [Suspect]
     Active Substance: PREDNISONE
     Indication: RADIATION PNEUMONITIS
     Dosage: UNK
     Route: 065
  3. AZATHIOPRINE. [Suspect]
     Active Substance: AZATHIOPRINE
     Indication: MYALGIA
     Dosage: UNK
     Route: 065

REACTIONS (16)
  - Macule [Unknown]
  - Fatigue [Unknown]
  - Blister [Unknown]
  - Skin oedema [Unknown]
  - Klebsiella sepsis [Unknown]
  - Abnormal loss of weight [Unknown]
  - Epstein-Barr virus infection [Unknown]
  - Decreased appetite [Unknown]
  - Oedema peripheral [Unknown]
  - Papule [Unknown]
  - Skin lesion [Unknown]
  - B-cell lymphoma [Unknown]
  - Necrosis [Unknown]
  - Acute kidney injury [Unknown]
  - Pancytopenia [Unknown]
  - Angiocentric lymphoma [Unknown]
